FAERS Safety Report 9672516 (Version 1)
Quarter: 2013Q4

REPORT INFORMATION
  Report Type: Spontaneous
  Country: US (occurrence: US)
  Receive Date: 20131106
  Receipt Date: 20131106
  Transmission Date: 20140711
  Serious: Yes (Hospitalization, Other)
  Sender: FDA-Public Use
  Company Number: US-RB-060152-13

PATIENT
  Age: 22 Year
  Sex: Female

DRUGS (2)
  1. GENERIC BUPRENORPHINE [Suspect]
     Indication: DRUG DEPENDENCE
     Route: 060
     Dates: start: 2012, end: 201212
  2. PERCOCET [Suspect]
     Indication: DRUG DEPENDENCE
     Dosage: DOSING INFORMATION UNKNOWN, TOOK UP TO 5TH MONTH OF PREGNANCY
     Route: 048
     Dates: start: 2008, end: 2012

REACTIONS (3)
  - Maternal exposure during pregnancy [Recovered/Resolved]
  - Uterine contractions during pregnancy [Recovered/Resolved]
  - Blood iron decreased [Recovered/Resolved]
